FAERS Safety Report 6107598-6 (Version None)
Quarter: 2009Q1

REPORT INFORMATION
  Report Type: 
  Country: None (occurrence: None)
  Receive Date: 20090302
  Receipt Date: 20081114
  Transmission Date: 20090719
  Serious: Yes (Hospitalization)
  Sender: FDA-Public Use
  Company Number: WAES 0811USA03680

PATIENT
  Age: 54 Year
  Sex: Female

DRUGS (3)
  1. PRINIVIL [Suspect]
     Indication: HYPERTENSION
     Dosage: PO
     Route: 048
     Dates: start: 20040707, end: 20040721
  2. ZOLOFT [Concomitant]
  3. WARFARIN [Concomitant]

REACTIONS (1)
  - ANGIOEDEMA [None]
